FAERS Safety Report 6775824-6 (Version None)
Quarter: 2010Q2

REPORT INFORMATION
  Report Type: 
  Country: None (occurrence: None)
  Receive Date: 20100615
  Receipt Date: 20100602
  Transmission Date: 20101027
  Serious: Yes (Hospitalization)
  Sender: FDA-Public Use
  Company Number: 013232

PATIENT
  Age: 20 Year
  Sex: Male

DRUGS (1)
  1. CIMZIA [Suspect]
     Indication: CROHN'S DISEASE
     Dosage: 400 MG 1X/MONTH, LAST INJECTION ON 22/APR/2010, SUBCUTANEOUS
     Route: 058
     Dates: start: 20100223, end: 20100401

REACTIONS (2)
  - ADVERSE DRUG REACTION [None]
  - MALAISE [None]
